FAERS Safety Report 6242221-1 (Version None)
Quarter: 2009Q2

REPORT INFORMATION
  Report Type: 
  Country: None (occurrence: None)
  Receive Date: 20090617
  Receipt Date: 20071130
  Transmission Date: 20091009
  Serious: No
  Sender: FDA-Public Use
  Company Number: 270101

PATIENT
  Sex: Female

DRUGS (4)
  1. LEVEMIR [Suspect]
     Indication: DIABETES MELLITUS
     Dosage: SUBCUTANEOUS
     Route: 058
  2. NOVOLIN N [Suspect]
     Indication: DIABETES MELLITUS
     Dosage: SUBCUTANEOUS
     Route: 058
  3. NOVOLIN R [Suspect]
     Indication: DIABETES MELLITUS
     Dosage: SUBCUTANEOUS
     Route: 058
  4. HUMALOG /00030501/ (INSULIN) [Concomitant]

REACTIONS (1)
  - ADVERSE DRUG REACTION [None]
